FAERS Safety Report 16945757 (Version 1)
Quarter: 2019Q4

REPORT INFORMATION
  Report Type: Spontaneous
  Country: US (occurrence: US)
  Receive Date: 20191021
  Receipt Date: 20191021
  Transmission Date: 20200122
  Serious: No
  Sender: FDA-Public Use
  Company Number: None

PATIENT
  Age: 30 Year
  Sex: Female
  Weight: 67.5 kg

DRUGS (1)
  1. XYREM [Suspect]
     Active Substance: SODIUM OXYBATE
     Indication: NARCOLEPSY
     Dosage: ?          QUANTITY:180 ML;?
     Route: 048
     Dates: start: 20190821, end: 20190903

REACTIONS (4)
  - Nausea [None]
  - Abdominal pain upper [None]
  - Gastritis [None]
  - Pain [None]

NARRATIVE: CASE EVENT DATE: 20190829
